FAERS Safety Report 25123694 (Version 1)
Quarter: 2025Q1

REPORT INFORMATION
  Report Type: Spontaneous
  Country: MY (occurrence: MY)
  Receive Date: 20250326
  Receipt Date: 20250326
  Transmission Date: 20250409
  Serious: Yes (Other)
  Sender: NOVARTIS
  Company Number: MY-002147023-NVSC2025MY047661

PATIENT

DRUGS (1)
  1. SECUKINUMAB [Suspect]
     Active Substance: SECUKINUMAB
     Indication: Psoriasis
     Dosage: UNK, QMO
     Route: 065

REACTIONS (4)
  - Cardiac failure [Unknown]
  - Dilated cardiomyopathy [Unknown]
  - Ejection fraction decreased [Unknown]
  - Product administration interrupted [Unknown]
